FAERS Safety Report 4559243-9 (Version None)
Quarter: 2005Q1

REPORT INFORMATION
  Report Type: 
  Country: None (occurrence: None)
  Receive Date: 20050121
  Receipt Date: 20050121
  Transmission Date: 20050727
  Serious: Yes (Life-Threatening, Hospitalization)
  Sender: FDA-Public Use
  Company Number: None

PATIENT
  Age: 83 Year
  Sex: Male
  Weight: 91.5 kg

DRUGS (2)
  1. LUPRON [Suspect]
     Indication: PROSTATE CANCER
     Dosage: INTRAMUSCU
     Route: 030
     Dates: start: 20031214, end: 20041214
  2. MEGESTROL   20 MG [Suspect]
     Dosage: 20 MG   DAILY   ORAL
     Route: 048
     Dates: start: 20031214, end: 20041214

REACTIONS (3)
  - DEEP VEIN THROMBOSIS [None]
  - FIBRIN D DIMER INCREASED [None]
  - PULMONARY EMBOLISM [None]
